FAERS Safety Report 14455335 (Version 2)
Quarter: 2018Q1

REPORT INFORMATION
  Report Type: Spontaneous
  Country: GB (occurrence: GB)
  Receive Date: 20180129
  Receipt Date: 20180308
  Transmission Date: 20180509
  Serious: Yes (Death)
  Sender: FDA-Public Use
  Company Number: GB-TEVA-2018-GB-852219

PATIENT
  Age: 46 Year
  Sex: Male

DRUGS (4)
  1. PREGABALIN. [Interacting]
     Active Substance: PREGABALIN
     Route: 065
  2. CODEINE [Interacting]
     Active Substance: CODEINE
     Route: 065
  3. DIAZEPAM. [Suspect]
     Active Substance: DIAZEPAM
     Route: 065
  4. METHADONE [Interacting]
     Active Substance: METHADONE HYDROCHLORIDE
     Route: 065

REACTIONS (3)
  - Intentional overdose [Fatal]
  - Intentional product misuse [Fatal]
  - Drug interaction [Fatal]
